FAERS Safety Report 21692938 (Version 2)
Quarter: 2025Q2

REPORT INFORMATION
  Report Type: Spontaneous
  Country: CA (occurrence: CA)
  Receive Date: 20221207
  Receipt Date: 20250619
  Transmission Date: 20250716
  Serious: Yes (Other)
  Sender: AUROBINDO
  Company Number: CA-MLMSERVICE-20211118-3227232-1

PATIENT
  Age: 27 Year
  Sex: Female

DRUGS (1)
  1. SULFAMETHOXAZOLE\TRIMETHOPRIM [Suspect]
     Active Substance: SULFAMETHOXAZOLE\TRIMETHOPRIM
     Indication: Product used for unknown indication
     Route: 065

REACTIONS (8)
  - Xanthoma [Recovered/Resolved with Sequelae]
  - Drug hypersensitivity [Unknown]
  - Dyslipidaemia [Recovering/Resolving]
  - Cholestasis [Unknown]
  - Hyperlipidaemia [Unknown]
  - Hypercholesterolaemia [Recovering/Resolving]
  - Pseudohyponatraemia [Unknown]
  - Hepatitis cholestatic [Unknown]
